FAERS Safety Report 23914774 (Version 1)
Quarter: 2024Q2

REPORT INFORMATION
  Report Type: Spontaneous
  Country: US (occurrence: None)
  Receive Date: 20240528
  Receipt Date: 20240528
  Transmission Date: 20240716
  Serious: No
  Sender: FDA-Public Use
  Company Number: None

PATIENT
  Age: 62 Year
  Sex: Female

DRUGS (2)
  1. TALTZ [Suspect]
     Active Substance: IXEKIZUMAB
     Indication: Psoriasis
     Dosage: OTHER QUANTITY : 80MG (1 PEN) ;?FREQUENCY : AS DIRECTED;?INJLCI BDMC (1 PLN) SUBCUI ANLOUSLY AL WEEK
     Route: 058
     Dates: start: 202312
  2. TALTZ [Suspect]
     Active Substance: IXEKIZUMAB
     Indication: Psoriatic arthropathy

REACTIONS (8)
  - Constipation [None]
  - Haematochezia [None]
  - Dizziness [None]
  - Hypotension [None]
  - Asthenia [None]
  - Haemorrhoids [None]
  - Polyp [None]
  - Abdominal discomfort [None]
